FAERS Safety Report 7727598-X (Version None)
Quarter: 2011Q3

REPORT INFORMATION
  Report Type: 
  Country: None (occurrence: None)
  Receive Date: 20110902
  Receipt Date: 20110822
  Transmission Date: 20111222
  Serious: Yes (Hospitalization, Other)
  Sender: FDA-Public Use
  Company Number: US-UCBSA-037709

PATIENT
  Age: 79 Year
  Sex: Male

DRUGS (5)
  1. PROPOFOL [Suspect]
     Indication: STATUS EPILEPTICUS
     Dosage: 2-3 MCG/KG/HR
     Route: 042
  2. ATIVAN [Suspect]
     Route: 040
  3. VIMPAT [Suspect]
     Dosage: 200-300 MG LOADING DOSE
     Route: 042
  4. LEVETIRACETAM [Suspect]
     Route: 040
  5. PHENYTOIN [Suspect]
     Dosage: 20 MG/KG
     Route: 040

REACTIONS (4)
  - HYPOTENSION [None]
  - ATRIOVENTRICULAR BLOCK [None]
  - CONVULSION [None]
  - PULMONARY OEDEMA [None]
